FAERS Safety Report 17978418 (Version 1)
Quarter: 2020Q3

REPORT INFORMATION
  Report Type: Report from Study
  Country: FR (occurrence: FR)
  Receive Date: 20200703
  Receipt Date: 20200703
  Transmission Date: 20201103
  Serious: Yes (Death, Other)
  Sender: FDA-Public Use
  Company Number: FR-ACCORD-187966

PATIENT

DRUGS (2)
  1. DOXORUBICIN [Suspect]
     Active Substance: DOXORUBICIN
     Indication: METASTASES TO PERITONEUM
     Dosage: 1.5 MG/M2 WERE GIVEN FOR 30 MIN AT 6?WEEK INTERVAL
  2. CISPLATIN. [Suspect]
     Active Substance: CISPLATIN
     Indication: METASTASES TO PERITONEUM
     Dosage: 7.5 MG/M2 WERE GIVEN FOR 30 MIN AT 6?WEEK INTERVALS.

REACTIONS (2)
  - Pulmonary embolism [Fatal]
  - Off label use [Unknown]
